FAERS Safety Report 23440252 (Version 2)
Quarter: 2024Q1

REPORT INFORMATION
  Report Type: Report from Study
  Country: US (occurrence: US)
  Receive Date: 20240124
  Receipt Date: 20240126
  Transmission Date: 20240409
  Serious: Yes (Hospitalization)
  Sender: FDA-Public Use
  Company Number: US-ABBVIE-5599767

PATIENT
  Age: 33 Year
  Sex: Male
  Weight: 77.11 kg

DRUGS (1)
  1. CREON [Suspect]
     Active Substance: PANCRELIPASE AMYLASE\PANCRELIPASE LIPASE\PANCRELIPASE PROTEASE
     Indication: Product used for unknown indication
     Dosage: FREQUENCY TEXT: 2 CAPSULE FOR EACH MEAL
     Route: 048
     Dates: start: 2023

REACTIONS (3)
  - Pancreatitis acute [Recovered/Resolved]
  - Pancreatitis [Recovered/Resolved]
  - Pain [Recovered/Resolved]

NARRATIVE: CASE EVENT DATE: 20240115
